FAERS Safety Report 13121341 (Version 4)
Quarter: 2017Q3

REPORT INFORMATION
  Report Type: Spontaneous
  Country: US (occurrence: US)
  Receive Date: 20170117
  Receipt Date: 20170905
  Transmission Date: 20171127
  Serious: Yes (Other)
  Sender: FDA-Public Use
  Company Number: US-AMGEN-USASP2017004060

PATIENT
  Age: 69 Year
  Sex: Female

DRUGS (2)
  1. ENBREL [Suspect]
     Active Substance: ETANERCEPT
     Dosage: 50 MG, QWK
     Route: 065
  2. ENBREL [Suspect]
     Active Substance: ETANERCEPT
     Indication: PSORIATIC ARTHROPATHY
     Dosage: 50 MG, QWK
     Route: 065
     Dates: start: 2013

REACTIONS (13)
  - Accidental exposure to product [Unknown]
  - Skin sensitisation [Unknown]
  - Injection site pain [Unknown]
  - Underdose [Unknown]
  - Corneal abrasion [Recovered/Resolved]
  - Anxiety [Unknown]
  - Localised infection [Recovered/Resolved]
  - Injection site haemorrhage [Unknown]
  - Blindness transient [Recovered/Resolved]
  - Conjunctivitis viral [Recovered/Resolved]
  - Unevaluable event [Unknown]
  - Blood pressure increased [Unknown]
  - Injection site urticaria [Recovered/Resolved]

NARRATIVE: CASE EVENT DATE: 2017
